FAERS Safety Report 10619901 (Version 1)
Quarter: 2014Q4

REPORT INFORMATION
  Report Type: Spontaneous
  Country: IL (occurrence: IL)
  Receive Date: 20141202
  Receipt Date: 20141202
  Transmission Date: 20150529
  Serious: Yes (Other)
  Sender: FDA-Public Use
  Company Number: PHHY2014IL153496

PATIENT
  Sex: Female

DRUGS (1)
  1. SIGNIFOR [Suspect]
     Active Substance: PASIREOTIDE
     Indication: PITUITARY-DEPENDENT CUSHING^S SYNDROME
     Dosage: 600 MCG/ML, BID
     Route: 058
     Dates: start: 201411

REACTIONS (2)
  - Hyperglycaemia [Not Recovered/Not Resolved]
  - Diarrhoea [Not Recovered/Not Resolved]
